FAERS Safety Report 24220261 (Version 1)
Quarter: 2024Q3

REPORT INFORMATION
  Report Type: Spontaneous
  Country: PL (occurrence: PL)
  Receive Date: 20240817
  Receipt Date: 20240817
  Transmission Date: 20241017
  Serious: Yes (Other)
  Sender: TEVA
  Company Number: None

PATIENT
  Age: 27 Year
  Sex: Female
  Weight: 55 kg

DRUGS (2)
  1. LEVOFLOXACIN [Suspect]
     Active Substance: LEVOFLOXACIN
     Indication: Bronchitis
     Route: 048
  2. BALADEX [Concomitant]
     Indication: Bronchitis
     Route: 048

REACTIONS (12)
  - Visual impairment [Recovered/Resolved]
  - Abdominal pain [Recovered/Resolved]
  - Defaecation urgency [Recovered/Resolved]
  - Restlessness [Recovered/Resolved]
  - Nausea [Recovered/Resolved]
  - Dizziness [Recovered/Resolved]
  - Insomnia [Recovered/Resolved]
  - Dyspepsia [Recovered/Resolved]
  - Paraesthesia [Recovered/Resolved]
  - Parosmia [Recovered/Resolved]
  - Taste disorder [Recovered/Resolved]
  - Psychotic symptom [Recovered/Resolved]

NARRATIVE: CASE EVENT DATE: 20200205
